FAERS Safety Report 15377594 (Version 1)
Quarter: 2018Q3

REPORT INFORMATION
  Report Type: Spontaneous
  Country: US (occurrence: US)
  Receive Date: 20180913
  Receipt Date: 20180913
  Transmission Date: 20181010
  Serious: No
  Sender: FDA-Public Use
  Company Number: US-LPDUSPRD-20171351

PATIENT
  Age: 57 Year
  Sex: Female

DRUGS (1)
  1. INJECTAFER [Suspect]
     Active Substance: FERRIC CARBOXYMALTOSE
     Dosage: 750 MG
     Route: 042
     Dates: start: 20170915, end: 20170922

REACTIONS (3)
  - Malaise [Unknown]
  - Rash generalised [Unknown]
  - Flank pain [Unknown]

NARRATIVE: CASE EVENT DATE: 20170915
